FAERS Safety Report 7683808-9 (Version None)
Quarter: 2011Q3

REPORT INFORMATION
  Report Type: 
  Country: None (occurrence: None)
  Receive Date: 20110815
  Receipt Date: 20110809
  Transmission Date: 20111222
  Serious: Yes (Hospitalization, Other)
  Sender: FDA-Public Use
  Company Number: GB-PFIZER INC-2011183294

PATIENT
  Age: 65 Year
  Sex: Male
  Weight: 84 kg

DRUGS (7)
  1. PARACETAMOL [Concomitant]
  2. TRAMADOL [Concomitant]
  3. TOPIRAMATE [Concomitant]
     Indication: EPILEPSY
     Dosage: 50 MG, 3X/DAY
  4. TOVIAZ [Suspect]
     Indication: HYPERTONIC BLADDER
     Dosage: 4 MG, UNK
     Route: 048
     Dates: start: 20110524, end: 20110616
  5. TRILEPTAL [Concomitant]
     Indication: EPILEPSY
     Dosage: 600 MG, UNK
  6. ACETYLSALICYLIC ACID [Concomitant]
  7. SIMVASTATIN [Concomitant]
     Dosage: 40 MG, 1X/DAY

REACTIONS (2)
  - GRAND MAL CONVULSION [None]
  - HEADACHE [None]
